FAERS Safety Report 13400458 (Version 1)
Quarter: 2017Q2

REPORT INFORMATION
  Report Type: Spontaneous
  Country: US (occurrence: US)
  Receive Date: 20170404
  Receipt Date: 20170404
  Transmission Date: 20170830
  Serious: Yes (Hospitalization, Other)
  Sender: FDA-Public Use
  Company Number: US-TEVA-755525USA

PATIENT
  Age: 29 Year
  Sex: Male

DRUGS (2)
  1. CLOZAPINE. [Suspect]
     Active Substance: CLOZAPINE
     Dosage: 800 MG
     Route: 065
  2. CLOZAPINE. [Suspect]
     Active Substance: CLOZAPINE
     Indication: HALLUCINATION, AUDITORY
     Dosage: 500 MILLIGRAM DAILY; AT BEDTIME
     Route: 065

REACTIONS (5)
  - Vomiting [Unknown]
  - Dehydration [Unknown]
  - Pneumonia aspiration [Recovering/Resolving]
  - Salivary hypersecretion [Unknown]
  - Choking sensation [Unknown]
